FAERS Safety Report 8118046-9 (Version None)
Quarter: 2012Q1

REPORT INFORMATION
  Report Type: 
  Country: None (occurrence: None)
  Receive Date: 20120207
  Receipt Date: 20120201
  Transmission Date: 20120608
  Serious: Yes (Life-Threatening, Hospitalization)
  Sender: FDA-Public Use
  Company Number: US-PFIZER INC-2012028359

PATIENT
  Sex: Female
  Weight: 79.365 kg

DRUGS (2)
  1. CLINDAMYCIN HCL [Suspect]
     Indication: RHINITIS
     Dosage: 150 MG, UNK
     Route: 048
     Dates: start: 20111101, end: 20111112
  2. BYSTOLIC [Concomitant]
     Indication: HYPERTENSION
     Dosage: UNK

REACTIONS (10)
  - STEVENS-JOHNSON SYNDROME [None]
  - INFLUENZA LIKE ILLNESS [None]
  - EOSINOPHIL COUNT INCREASED [None]
  - LYMPHOCYTE COUNT INCREASED [None]
  - MONOCYTE COUNT INCREASED [None]
  - ALANINE AMINOTRANSFERASE INCREASED [None]
  - ASPARTATE AMINOTRANSFERASE INCREASED [None]
  - RED BLOOD CELL COUNT DECREASED [None]
  - PLATELET COUNT INCREASED [None]
  - HAEMATOCRIT DECREASED [None]
